FAERS Safety Report 6512542-3 (Version None)
Quarter: 2009Q4

REPORT INFORMATION
  Report Type: 
  Country: None (occurrence: None)
  Receive Date: 20091222
  Receipt Date: 20091217
  Transmission Date: 20100525
  Serious: Yes (Death, Hospitalization)
  Sender: FDA-Public Use
  Company Number: BE-MERCK-0912BEL00013

PATIENT
  Age: 47 Year
  Sex: Male
  Weight: 61 kg

DRUGS (8)
  1. ISENTRESS [Suspect]
     Indication: HIV INFECTION
     Route: 048
     Dates: start: 20081216
  2. MEDROL [Concomitant]
     Route: 048
  3. EMTRIVA [Concomitant]
     Indication: HIV INFECTION
     Route: 048
  4. CELSENTRI [Concomitant]
     Indication: HIV INFECTION
     Route: 048
  5. DOLZAM [Concomitant]
     Route: 048
  6. EFAVIRENZ [Concomitant]
     Indication: HIV INFECTION
     Route: 065
  7. LOPINAVIR [Concomitant]
     Indication: HIV INFECTION
     Route: 048
     Dates: end: 20081215
  8. RITONAVIR [Concomitant]
     Indication: HIV INFECTION
     Route: 048

REACTIONS (1)
  - CASTLEMAN'S DISEASE [None]
